FAERS Safety Report 4442310-8 (Version None)
Quarter: 2004Q3

REPORT INFORMATION
  Report Type: 
  Country: None (occurrence: None)
  Receive Date: 20040903
  Receipt Date: 20040107
  Transmission Date: 20050211
  Serious: Yes (Other)
  Sender: FDA-Public Use
  Company Number: 2004UW06367

PATIENT
  Age: 40 Year
  Weight: 96.6162 kg

DRUGS (4)
  1. CRESTOR [Suspect]
     Indication: HYPERLIPIDAEMIA
     Dosage: 10 MG QD PO
     Route: 048
  2. TOPROL-XL [Concomitant]
  3. LOTREL [Concomitant]
  4. ASPIRIN [Concomitant]

REACTIONS (1)
  - CONTUSION [None]
